FAERS Safety Report 19472359 (Version 2)
Quarter: 2021Q3

REPORT INFORMATION
  Report Type: Spontaneous
  Country: US (occurrence: US)
  Receive Date: 20210629
  Receipt Date: 20210721
  Transmission Date: 20211014
  Serious: No
  Sender: FDA-Public Use
  Company Number: US-ORGANON-O2106USA002214

PATIENT
  Age: 19 Year
  Sex: Female
  Weight: 77.11 kg

DRUGS (1)
  1. NEXPLANON [Suspect]
     Active Substance: ETONOGESTREL
     Indication: CONTRACEPTION
     Dosage: 1 IMPLANT, EVERY 3 YEARS
     Route: 059
     Dates: start: 20210623

REACTIONS (4)
  - Product quality issue [Unknown]
  - Device difficult to use [Recovered/Resolved]
  - Complication of device removal [Not Recovered/Not Resolved]
  - Implant site swelling [Unknown]

NARRATIVE: CASE EVENT DATE: 20210623
